FAERS Safety Report 20069774 (Version 8)
Quarter: 2022Q4

REPORT INFORMATION
  Report Type: Report from Study
  Country: MY (occurrence: MY)
  Receive Date: 20211115
  Receipt Date: 20221011
  Transmission Date: 20230112
  Serious: Yes (Death, Hospitalization, Other)
  Sender: FDA-Public Use
  Company Number: MY-TAKEDA-2021TUS068415

PATIENT
  Age: 86 Year
  Sex: Female

DRUGS (1)
  1. IXAZOMIB [Suspect]
     Active Substance: IXAZOMIB
     Indication: Plasma cell myeloma
     Dosage: 3 MILLIGRAM, Q4WEEKS
     Route: 048
     Dates: start: 20210328

REACTIONS (5)
  - Plasma cell myeloma [Fatal]
  - Klebsiella sepsis [Recovered/Resolved]
  - Dementia [Unknown]
  - Drug intolerance [Unknown]
  - Asthenia [Unknown]

NARRATIVE: CASE EVENT DATE: 20210814
